FAERS Safety Report 10594603 (Version 1)
Quarter: 2014Q4

REPORT INFORMATION
  Report Type: Spontaneous
  Country: US (occurrence: US)
  Receive Date: 20141120
  Receipt Date: 20141120
  Transmission Date: 20150529
  Serious: No
  Sender: FDA-Public Use
  Company Number: US-TEVA-460571USA

PATIENT
  Sex: Female

DRUGS (1)
  1. BUDESONIDE. [Suspect]
     Active Substance: BUDESONIDE
     Dosage: 0.25 MG/2 ML INHALATION SUSPENSION

REACTIONS (3)
  - Sneezing [Unknown]
  - Pruritus [Unknown]
  - Lacrimation increased [Unknown]
